FAERS Safety Report 22644080 (Version 4)
Quarter: 2024Q1

REPORT INFORMATION
  Report Type: Report from Study
  Country: DE (occurrence: DE)
  Receive Date: 20230627
  Receipt Date: 20240112
  Transmission Date: 20240409
  Serious: Yes (Hospitalization, Other)
  Sender: FDA-Public Use
  Company Number: DE-TAKEDA-2023TUS061490

PATIENT
  Age: 70 Year
  Sex: Male
  Weight: 80 kg

DRUGS (24)
  1. ANTIHEMOPHILIC FACTOR, PEGYLATED (MW 20000) HUMAN SEQUENCE RECOMBINANT [Suspect]
     Active Substance: ANTIHEMOPHILIC FACTOR, PEGYLATED (MW 20000) HUMAN SEQUENCE RECOMBINANT
     Indication: Factor VIII deficiency
     Dosage: 38 INTERNATIONAL UNIT/KILOGRAM
     Route: 065
     Dates: start: 20180503
  2. ANTIHEMOPHILIC FACTOR, PEGYLATED (MW 20000) HUMAN SEQUENCE RECOMBINANT [Suspect]
     Active Substance: ANTIHEMOPHILIC FACTOR, PEGYLATED (MW 20000) HUMAN SEQUENCE RECOMBINANT
     Indication: Factor VIII deficiency
     Dosage: 38 INTERNATIONAL UNIT/KILOGRAM
     Route: 065
     Dates: start: 20180503
  3. ANTIHEMOPHILIC FACTOR, PEGYLATED (MW 20000) HUMAN SEQUENCE RECOMBINANT [Suspect]
     Active Substance: ANTIHEMOPHILIC FACTOR, PEGYLATED (MW 20000) HUMAN SEQUENCE RECOMBINANT
     Indication: Factor VIII deficiency
     Dosage: 38 INTERNATIONAL UNIT/KILOGRAM
     Route: 065
     Dates: start: 20180503
  4. ANTIHEMOPHILIC FACTOR, PEGYLATED (MW 20000) HUMAN SEQUENCE RECOMBINANT [Suspect]
     Active Substance: ANTIHEMOPHILIC FACTOR, PEGYLATED (MW 20000) HUMAN SEQUENCE RECOMBINANT
     Dosage: 38 INTERNATIONAL UNIT/KILOGRAM, 2/WEEK
     Route: 065
     Dates: start: 20210722
  5. ANTIHEMOPHILIC FACTOR, PEGYLATED (MW 20000) HUMAN SEQUENCE RECOMBINANT [Suspect]
     Active Substance: ANTIHEMOPHILIC FACTOR, PEGYLATED (MW 20000) HUMAN SEQUENCE RECOMBINANT
     Dosage: 38 INTERNATIONAL UNIT/KILOGRAM, 2/WEEK
     Route: 065
     Dates: start: 20210722
  6. ANTIHEMOPHILIC FACTOR, PEGYLATED (MW 20000) HUMAN SEQUENCE RECOMBINANT [Suspect]
     Active Substance: ANTIHEMOPHILIC FACTOR, PEGYLATED (MW 20000) HUMAN SEQUENCE RECOMBINANT
     Dosage: 38 INTERNATIONAL UNIT/KILOGRAM, 2/WEEK
     Route: 065
     Dates: start: 20210722
  7. PLAVIX [Concomitant]
     Active Substance: CLOPIDOGREL BISULFATE
     Indication: Hypercholesterolaemia
     Dosage: 75 MILLIGRAM, QD
     Route: 048
  8. BISOPROLOL [Concomitant]
     Active Substance: BISOPROLOL\BISOPROLOL FUMARATE
     Indication: Coronary artery disease
     Dosage: 2.5 MILLIGRAM, QD
     Route: 048
     Dates: start: 2002
  9. PANTOZOL [Concomitant]
     Active Substance: PANTOPRAZOLE SODIUM
     Indication: Prophylaxis
     Dosage: 40 MILLIGRAM, QD
     Route: 048
  10. SIMVASTATIN [Concomitant]
     Active Substance: SIMVASTATIN
     Indication: Hypercholesterolaemia
     Dosage: 20 MILLIGRAM, QD
     Route: 048
     Dates: end: 20230307
  11. RAMIPRIL [Concomitant]
     Active Substance: RAMIPRIL
     Indication: Coronary artery disease
     Dosage: 5 MILLIGRAM, QD
     Route: 048
     Dates: start: 2002
  12. IBUPROFEN [Concomitant]
     Active Substance: IBUPROFEN
     Indication: Analgesic therapy
     Dosage: 200 MILLIGRAM, QD
     Route: 048
  13. ENOXAPARIN SODIUM [Concomitant]
     Active Substance: ENOXAPARIN SODIUM
     Indication: Thrombosis prophylaxis
     Dosage: 40 MILLIGRAM, QD
     Route: 058
     Dates: start: 20211206, end: 20211211
  14. NALOXONE HYDROCHLORIDE\TILIDINE HYDROCHLORIDE [Concomitant]
     Active Substance: NALOXONE HYDROCHLORIDE\TILIDINE HYDROCHLORIDE
     Indication: Analgesic therapy
     Dosage: 50 MILLIGRAM, BID
     Route: 048
     Dates: start: 20211206, end: 20211211
  15. NALOXONE HYDROCHLORIDE\TILIDINE HYDROCHLORIDE [Concomitant]
     Active Substance: NALOXONE HYDROCHLORIDE\TILIDINE HYDROCHLORIDE
     Dosage: 100 MILLIGRAM, QD
     Route: 048
     Dates: start: 20230308, end: 20230324
  16. NALOXONE HYDROCHLORIDE\TILIDINE HYDROCHLORIDE [Concomitant]
     Active Substance: NALOXONE HYDROCHLORIDE\TILIDINE HYDROCHLORIDE
     Dosage: 4 MILLIGRAM, BID
     Route: 048
     Dates: start: 20220425
  17. NALOXONE HYDROCHLORIDE [Concomitant]
     Active Substance: NALOXONE HYDROCHLORIDE
     Indication: Analgesic therapy
     Dosage: 4 MILLIGRAM, BID
     Route: 048
     Dates: start: 20211206, end: 20211211
  18. NALOXONE HYDROCHLORIDE [Concomitant]
     Active Substance: NALOXONE HYDROCHLORIDE
     Dosage: 8 MILLIGRAM, TID
     Route: 048
     Dates: start: 20230308, end: 20230324
  19. ROSUVASTATIN [Concomitant]
     Active Substance: ROSUVASTATIN
     Indication: Hypercholesterolaemia
     Dosage: 20 MILLIGRAM, QD
     Route: 048
     Dates: start: 20230308
  20. ACETAMINOPHEN [Concomitant]
     Active Substance: ACETAMINOPHEN
     Indication: Analgesic therapy
     Dosage: 1 GRAM, TID
     Route: 042
     Dates: start: 20230308, end: 20230324
  21. NICOTINE [Concomitant]
     Active Substance: NICOTINE
     Indication: Smoking cessation therapy
     Dosage: 14 MILLIGRAM, QD
     Route: 062
     Dates: start: 20230308, end: 20230324
  22. LEVOTHYROXINE [Concomitant]
     Active Substance: LEVOTHYROXINE
     Indication: Hypothyroidism
     Dosage: 100 MILLIGRAM, QD
     Route: 048
     Dates: start: 20230308
  23. CEFUROXIME [Concomitant]
     Active Substance: CEFUROXIME
     Indication: Post procedural complication
     Dosage: UNK
     Route: 050
     Dates: start: 20230312, end: 20230314
  24. CALCIUM\CHOLECALCIFEROL [Concomitant]
     Active Substance: CALCIUM\CHOLECALCIFEROL
     Indication: Osteoporosis
     Dosage: 1.2 GRAM, QD
     Route: 048
     Dates: start: 2003

REACTIONS (2)
  - Haemophilic arthropathy [Recovered/Resolved]
  - Surgical failure [Recovering/Resolving]

NARRATIVE: CASE EVENT DATE: 20220707
